FAERS Safety Report 23105215 (Version 5)
Quarter: 2024Q1

REPORT INFORMATION
  Report Type: Report from Study
  Country: US (occurrence: US)
  Receive Date: 20231025
  Receipt Date: 20240125
  Transmission Date: 20240410
  Serious: Yes (Hospitalization, Other)
  Sender: FDA-Public Use
  Company Number: US-ABBVIE-5463173

PATIENT
  Sex: Female
  Weight: 65.317 kg

DRUGS (3)
  1. RINVOQ [Suspect]
     Active Substance: UPADACITINIB
     Indication: Colitis ulcerative
     Dosage: EXTENDED RELEASED, 45 MG TABLET BY MOUTH ONCE DAILY FOR 8 WEEKS
     Route: 048
     Dates: start: 202307, end: 20230901
  2. RINVOQ [Suspect]
     Active Substance: UPADACITINIB
     Indication: Colitis ulcerative
     Dosage: EXTENDED RELEASED, FORM STRENGTH: 30 MILLIGRAM
     Route: 048
     Dates: start: 20230903
  3. ATORVASTATIN [Concomitant]
     Active Substance: ATORVASTATIN
     Indication: Blood cholesterol
     Route: 065

REACTIONS (8)
  - Pulmonary thrombosis [Recovered/Resolved]
  - Asthenia [Recovered/Resolved]
  - Gastrointestinal haemorrhage [Unknown]
  - Thrombosis [Recovered/Resolved]
  - Dyspnoea [Recovered/Resolved]
  - Anaemia [Recovered/Resolved]
  - Blood iron decreased [Unknown]
  - Dyspnoea [Unknown]

NARRATIVE: CASE EVENT DATE: 20230101
